FAERS Safety Report 7530354-9 (Version None)
Quarter: 2011Q2

REPORT INFORMATION
  Report Type: 
  Country: None (occurrence: None)
  Receive Date: 20110607
  Receipt Date: 20110524
  Transmission Date: 20111010
  Serious: Yes (Hospitalization, Other)
  Sender: FDA-Public Use
  Company Number: US-UCBSA-021832

PATIENT
  Sex: Female
  Weight: 68.94 kg

DRUGS (2)
  1. CIMZIA [Suspect]
     Indication: CROHN'S DISEASE
     Dosage: 2 INJECTIONS
     Route: 058
     Dates: start: 20101005, end: 20101001
  2. REMICADE [Concomitant]

REACTIONS (2)
  - WOUND [None]
  - PANCREATITIS ACUTE [None]
